FAERS Safety Report 5216378-5 (Version None)
Quarter: 2006Q4

REPORT INFORMATION
  Report Type: 
  Country: None (occurrence: None)
  Receive Date: 20061124
  Receipt Date: 20060905
  Transmission Date: 20070319
  Serious: Yes (Hospitalization)
  Sender: FDA-Public Use
  Company Number: WAES 0609USA00763

PATIENT
  Age: 64 Year
  Sex: Female

DRUGS (1)
  1. VYTORIN [Suspect]
     Indication: BLOOD CHOLESTEROL INCREASED
     Dosage: 10-20 MG/DAILY/PO
     Route: 048
     Dates: start: 20060205, end: 20060301

REACTIONS (1)
  - PAIN IN EXTREMITY [None]
